FAERS Safety Report 18567157 (Version 1)
Quarter: 2020Q4

REPORT INFORMATION
  Report Type: Spontaneous
  Country: FR (occurrence: FR)
  Receive Date: 20201201
  Receipt Date: 20201201
  Transmission Date: 20210114
  Serious: Yes (Life-Threatening, Other)
  Sender: FDA-Public Use
  Company Number: FR-BAYER-2020-254984

PATIENT
  Age: 76 Year
  Sex: Female
  Weight: 80 kg

DRUGS (13)
  1. CALCIPARINE [Concomitant]
     Active Substance: HEPARIN CALCIUM
  2. CIPROFLOXACIN BETAIN [Suspect]
     Active Substance: CIPROFLOXACIN
     Indication: INFECTION
     Route: 042
     Dates: start: 20200827, end: 20200909
  3. KARDEGIC [Concomitant]
     Active Substance: ASPIRIN DL-LYSINE
  4. MOVICOL [MACROGOL 3350;POTASSIUM CHLORIDE;SODIUM BICARBONATE;SODIU [Concomitant]
  5. BISOPROLOL FUMARATE. [Concomitant]
     Active Substance: BISOPROLOL FUMARATE
  6. AMLODIPINE [Concomitant]
     Active Substance: AMLODIPINE BESYLATE
     Dosage: 10 MCI
  7. TIMOFEROL [Concomitant]
     Active Substance: ASCORBIC ACID\FERROUS SULFATE
  8. DOLIPRANE [Concomitant]
     Active Substance: ACETAMINOPHEN
  9. DAPTOMYCINE [Suspect]
     Active Substance: DAPTOMYCIN
     Indication: INFECTION
     Route: 042
     Dates: start: 20200825, end: 20200907
  10. APROVEL [Concomitant]
     Active Substance: IRBESARTAN
  11. CEFEPIME [Suspect]
     Active Substance: CEFEPIME HYDROCHLORIDE
     Indication: INFECTION
     Route: 042
     Dates: start: 20200825, end: 20200909
  12. EUPANTOL [Concomitant]
     Active Substance: PANTOPRAZOLE SODIUM
  13. CONTRAMAL [Concomitant]
     Active Substance: TRAMADOL HYDROCHLORIDE

REACTIONS (3)
  - Encephalopathy [Recovered/Resolved]
  - Overdose [Recovered/Resolved]
  - Acute kidney injury [Recovered/Resolved]

NARRATIVE: CASE EVENT DATE: 20200908
